FAERS Safety Report 7427917-8 (Version None)
Quarter: 2011Q2

REPORT INFORMATION
  Report Type: 
  Country: None (occurrence: None)
  Receive Date: 20110421
  Receipt Date: 20101221
  Transmission Date: 20111010
  Serious: Yes (Hospitalization)
  Sender: FDA-Public Use
  Company Number: US-BAYER-201018620NA

PATIENT
  Age: 16 Year
  Sex: Female

DRUGS (2)
  1. YAZ [Suspect]
     Indication: PRODUCT USED FOR UNKNOWN INDICATION
     Dosage: UNK
     Route: 048
     Dates: start: 20070101, end: 20080101
  2. NAPROXEN (ALEVE) [Concomitant]
     Indication: PAIN

REACTIONS (6)
  - PAIN [None]
  - NEPHROLITHIASIS [None]
  - METRORRHAGIA [None]
  - BACK PAIN [None]
  - RENAL INJURY [None]
  - OVARIAN DISORDER [None]
